FAERS Safety Report 8282020-2 (Version None)
Quarter: 2012Q2

REPORT INFORMATION
  Report Type: 
  Country: None (occurrence: None)
  Receive Date: 20120410
  Receipt Date: 20120306
  Transmission Date: 20120825
  Serious: Yes (Death)
  Sender: FDA-Public Use
  Company Number: US-REGULIS-0039

PATIENT
  Age: 41 Year
  Sex: Male

DRUGS (13)
  1. PREDNISONE TAB [Concomitant]
  2. CIDOFOVIR [Concomitant]
  3. FLUDARABINE PHOSPHATE [Concomitant]
  4. CYCLOSPORINE [Concomitant]
  5. ANTI-THYMOCYTE GLOBULIN NOS [Concomitant]
  6. GANCICLOVIR [Concomitant]
  7. CYCLOPHOSPHAMIDE - COATED TABLET / CYCLOPHOSPHAMIDE [Concomitant]
  8. MYCOPHENOLATE MOFETIL [Concomitant]
  9. FOSCARNET [Suspect]
     Indication: CYTOMEGALOVIRUS VIRAEMIA
     Dosage: 60, MG/KG MILLIGRAM(S)/KILOGRAM, 1,1, DAYS,  INTRAVENOUS (NOT OTHERWISE SPECIFIED)
     Route: 042
  10. VALGANCICLOVIR HCL [Concomitant]
  11. FOSCARNET [Suspect]
     Indication: CYTOMEGALOVIRUS VIRAEMIA
     Dosage: 90, MG/KG MILLIGRAM(S)/KILOGRAM, 1. 12 HOURSINTRAVENOUS (NOT OTHERWISE SPECIFIED)
     Route: 042
  12. FOSCARNET [Suspect]
     Indication: ENCEPHALITIS CYTOMEGALOVIRUS
     Dosage: 60, MG/KG MILLIGRAM(S)/KILOGRAM 1, 12, HOURS , INTRAVENOUS (NOT OTHERWISE SPECIFIED)
     Route: 042
  13. IMMUNOGLOBULIN / IMMUNOGLOBULINS [Concomitant]

REACTIONS (8)
  - ENCEPHALITIS [None]
  - ACUTE LEUKAEMIA [None]
  - DISEASE PROGRESSION [None]
  - MEMORY IMPAIRMENT [None]
  - NEUROLOGICAL DECOMPENSATION [None]
  - RENAL FAILURE [None]
  - DISORIENTATION [None]
  - NEPHROPATHY TOXIC [None]
